FAERS Safety Report 20182244 (Version 1)
Quarter: 2021Q4

REPORT INFORMATION
  Report Type: Spontaneous
  Country: US (occurrence: US)
  Receive Date: 20211214
  Receipt Date: 20211214
  Transmission Date: 20220303
  Serious: No
  Sender: FDA-Public Use
  Company Number: US-SANOFI-00888142

PATIENT
  Sex: Male

DRUGS (1)
  1. AUBAGIO [Suspect]
     Active Substance: TERIFLUNOMIDE
     Dosage: UNK

REACTIONS (6)
  - Confusional state [Unknown]
  - Stress [Unknown]
  - Feeling abnormal [Unknown]
  - Memory impairment [Unknown]
  - Tangentiality [Unknown]
  - Product dose omission issue [Unknown]
